FAERS Safety Report 9028895 (Version 1)
Quarter: 2013Q1

REPORT INFORMATION
  Report Type: Spontaneous
  Country: US (occurrence: US)
  Receive Date: 20130124
  Receipt Date: 20130124
  Transmission Date: 20140127
  Serious: No
  Sender: FDA-Public Use
  Company Number: US-BAUSCH-2012BL003667

PATIENT
  Age: 82 Year
  Sex: Female

DRUGS (2)
  1. ALAWAY [Suspect]
     Indication: EYE PRURITUS
     Route: 047
     Dates: start: 20120525, end: 20120529
  2. ARTIFICIAL TEARS [Concomitant]
     Indication: DRY EYE
     Route: 047

REACTIONS (2)
  - Instillation site pain [Recovered/Resolved]
  - Vision blurred [Recovered/Resolved]
